FAERS Safety Report 7784977-2 (Version None)
Quarter: 2011Q3

REPORT INFORMATION
  Report Type: 
  Country: None (occurrence: None)
  Receive Date: 20110928
  Receipt Date: 20110920
  Transmission Date: 20111222
  Serious: Yes (Other)
  Sender: FDA-Public Use
  Company Number: PHEH2010US03463

PATIENT
  Sex: Female

DRUGS (10)
  1. ALBUTEROL [Concomitant]
  2. NEURONTIN [Concomitant]
  3. FLOVENT [Concomitant]
  4. PERCOCET [Concomitant]
  5. AUGMENTIN '125' [Concomitant]
  6. VANCOMYCIN [Concomitant]
  7. VICODIN [Concomitant]
  8. ZESTRIL [Concomitant]
  9. DEMEROL [Concomitant]
  10. ZOMETA [Suspect]
     Dosage: UNK
     Dates: start: 20060101

REACTIONS (20)
  - MASTICATION DISORDER [None]
  - OBSTRUCTIVE AIRWAYS DISORDER [None]
  - ATELECTASIS [None]
  - DIVERTICULITIS [None]
  - OSTEONECROSIS OF JAW [None]
  - ANXIETY [None]
  - PAIN [None]
  - EMOTIONAL DISTRESS [None]
  - ACTIVITIES OF DAILY LIVING IMPAIRED [None]
  - DEEP VEIN THROMBOSIS [None]
  - DEFORMITY [None]
  - PLEURAL EFFUSION [None]
  - LYMPHADENOPATHY [None]
  - LUNG NEOPLASM [None]
  - CHRONIC SINUSITIS [None]
  - HEPATIC STEATOSIS [None]
  - CARDIAC FAILURE CONGESTIVE [None]
  - COLITIS ULCERATIVE [None]
  - SLEEP APNOEA SYNDROME [None]
  - QUALITY OF LIFE DECREASED [None]
